FAERS Safety Report 10621529 (Version 1)
Quarter: 2014Q4

REPORT INFORMATION
  Report Type: Spontaneous
  Country: US (occurrence: None)
  Receive Date: 20141126
  Receipt Date: 20141126
  Transmission Date: 20150529
  Serious: Yes (Hospitalization)
  Sender: FDA-Public Use
  Company Number: None

PATIENT
  Age: 14 Year
  Sex: Female
  Weight: 77.57 kg

DRUGS (1)
  1. ESCITALOPRAM [Suspect]
     Active Substance: ESCITALOPRAM OXALATE
     Indication: DEPRESSION
     Route: 048
     Dates: start: 20141122, end: 20141123

REACTIONS (14)
  - Feeling abnormal [None]
  - Panic attack [None]
  - Headache [None]
  - Insomnia [None]
  - Hallucination [None]
  - Psychotic behaviour [None]
  - Hypertension [None]
  - Nausea [None]
  - Chest pain [None]
  - Anxiety [None]
  - Fatigue [None]
  - Heart rate increased [None]
  - Hyperhidrosis [None]
  - Mydriasis [None]

NARRATIVE: CASE EVENT DATE: 20141124
